FAERS Safety Report 15256483 (Version 1)
Quarter: 2018Q3

REPORT INFORMATION
  Report Type: Report from Study
  Country: None (occurrence: GB)
  Receive Date: 20180808
  Receipt Date: 20180808
  Transmission Date: 20181010
  Serious: Yes (Hospitalization)
  Sender: FDA-Public Use
  Company Number: GB-ABBVIE-18K-167-2427378-00

PATIENT
  Age: 64 Year
  Sex: Female

DRUGS (2)
  1. DUODOPA [Suspect]
     Active Substance: CARBIDOPA\LEVODOPA
     Indication: PARKINSON^S DISEASE
     Dosage: 1 CASSETTE DAILY
     Route: 050
  2. SINEMET [Concomitant]
     Active Substance: CARBIDOPA\LEVODOPA
     Indication: PRODUCT USED FOR UNKNOWN INDICATION

REACTIONS (18)
  - Device alarm issue [Recovered/Resolved]
  - Device kink [Unknown]
  - Tremor [Recovered/Resolved]
  - On and off phenomenon [Unknown]
  - Malaise [Recovered/Resolved]
  - Hyperhidrosis [Unknown]
  - Chest pain [Unknown]
  - Restless legs syndrome [Unknown]
  - Restlessness [Unknown]
  - Insomnia [Unknown]
  - Stoma site discharge [Unknown]
  - Hypertension [Unknown]
  - Adverse event [Unknown]
  - Urine viscosity increased [Unknown]
  - Extra dose administered [Unknown]
  - Agitation [Unknown]
  - Stoma site pain [Unknown]
  - Dyspnoea [Recovered/Resolved]

NARRATIVE: CASE EVENT DATE: 2018
